FAERS Safety Report 9556828 (Version 1)
Quarter: 2013Q3

REPORT INFORMATION
  Report Type: Spontaneous
  Country: US (occurrence: None)
  Receive Date: 20130724
  Receipt Date: 20130724
  Transmission Date: 20140515
  Serious: Yes (Other)
  Sender: FDA-Public Use
  Company Number: PHEH2013US007718

PATIENT
  Age: 37 Year
  Sex: Female

DRUGS (6)
  1. GILENYA (FINGOLIMOD) CAPSULE, 0.5MG [Suspect]
     Indication: MULTIPLE SCLEROSIS
     Route: 048
  2. PROPRANOLOL (PROPRANOLOL) [Concomitant]
  3. ABILIFY (ARIPIPRAZOLE) [Concomitant]
  4. ZOLOFT (SERTRALINE HYDROCHLORIDE) [Concomitant]
  5. COPAXONE (GLATIRAMER ACETATE) [Concomitant]
  6. PINDOLOL (PINDOLOL) [Concomitant]

REACTIONS (1)
  - Ophthalmological examination abnormal [None]
